FAERS Safety Report 24965760 (Version 1)
Quarter: 2025Q1

REPORT INFORMATION
  Report Type: Report from Study
  Country: ES (occurrence: ES)
  Receive Date: 20250213
  Receipt Date: 20250213
  Transmission Date: 20250409
  Serious: Yes (Other)
  Sender: TEVA
  Company Number: ES-TEVA-VS-3295082

PATIENT
  Age: 70 Year
  Sex: Female

DRUGS (5)
  1. TERIPARATIDE [Suspect]
     Active Substance: TERIPARATIDE
     Indication: Osteoporosis
     Route: 065
     Dates: start: 20250131
  2. LAVENTAIR [Concomitant]
     Indication: Chronic obstructive pulmonary disease
     Route: 065
  3. Palexia 159 [Concomitant]
     Indication: Pain
     Route: 065
  4. Nolotil [Concomitant]
     Indication: Pain
     Route: 065
  5. DICLOFENAC [Concomitant]
     Active Substance: DICLOFENAC
     Indication: Pain
     Route: 065

REACTIONS (2)
  - Respiratory distress [Not Recovered/Not Resolved]
  - Musculoskeletal stiffness [Not Recovered/Not Resolved]

NARRATIVE: CASE EVENT DATE: 20250202
